FAERS Safety Report 23890357 (Version 1)
Quarter: 2024Q2

REPORT INFORMATION
  Report Type: Spontaneous
  Country: RO (occurrence: RO)
  Receive Date: 20240523
  Receipt Date: 20240523
  Transmission Date: 20240715
  Serious: Yes (Other)
  Sender: FDA-Public Use
  Company Number: RO-AMGEN-ROUSP2024097393

PATIENT
  Age: 56 Year
  Sex: Male

DRUGS (3)
  1. KYPROLIS [Suspect]
     Active Substance: CARFILZOMIB
     Indication: Plasma cell myeloma
     Dosage: UNK UNK, Q2WK
     Route: 065
     Dates: start: 202401
  2. DEXAMETHASONE [Concomitant]
     Active Substance: DEXAMETHASONE
     Indication: Plasma cell myeloma
     Dosage: UNK
     Route: 065
     Dates: start: 202401
  3. LENALIDOMIDE [Concomitant]
     Active Substance: LENALIDOMIDE
     Indication: Plasma cell myeloma
     Dosage: 25 MILLIGRAM, QOD
     Route: 065
     Dates: start: 202401

REACTIONS (11)
  - Pancytopenia [Unknown]
  - Multiple organ dysfunction syndrome [Unknown]
  - Hepatic cytolysis [Unknown]
  - Thrombocytopenia [Unknown]
  - Asthenia [Unknown]
  - Hyperhidrosis [Unknown]
  - Cough [Unknown]
  - Bone pain [Unknown]
  - Anaemia [Unknown]
  - Hypoproteinaemia [Unknown]
  - Hypocalcaemia [Unknown]

NARRATIVE: CASE EVENT DATE: 20240101
